FAERS Safety Report 8308085-7 (Version None)
Quarter: 2012Q2

REPORT INFORMATION
  Report Type: 
  Country: None (occurrence: None)
  Receive Date: 20120420
  Receipt Date: 20120409
  Transmission Date: 20120825
  Serious: Yes (Other)
  Sender: FDA-Public Use
  Company Number: 2012P1012460

PATIENT
  Age: 16 Year
  Sex: Female

DRUGS (3)
  1. HEPARIN [Suspect]
     Indication: INTRAVENOUS CATHETER MANAGEMENT
     Dosage: X1;IV
     Route: 042
  2. INFLIXIMAB [Concomitant]
  3. HEPARIN [Suspect]
     Dosage: X1;TOP
     Route: 061

REACTIONS (6)
  - DYSPNOEA [None]
  - MYALGIA [None]
  - INFLAMMATION [None]
  - ABDOMINAL PAIN [None]
  - PYREXIA [None]
  - APPLICATION SITE ERYTHEMA [None]
